FAERS Safety Report 8483371-9 (Version None)
Quarter: 2012Q3

REPORT INFORMATION
  Report Type: 
  Country: None (occurrence: None)
  Receive Date: 20120702
  Receipt Date: 20120625
  Transmission Date: 20120928
  Serious: Yes (Hospitalization)
  Sender: FDA-Public Use
  Company Number: DE-JNJFOC-20120312992

PATIENT
  Sex: Female

DRUGS (2)
  1. RIVAROXABAN [Suspect]
     Indication: PULMONARY EMBOLISM
     Route: 048
     Dates: start: 20120222
  2. RIVAROXABAN [Suspect]
     Indication: PULMONARY THROMBOSIS
     Route: 048
     Dates: start: 20120222

REACTIONS (2)
  - CERVICITIS [None]
  - POSTMENOPAUSAL HAEMORRHAGE [None]
